FAERS Safety Report 6472966-X (Version None)
Quarter: 2009Q4

REPORT INFORMATION
  Report Type: 
  Country: None (occurrence: None)
  Receive Date: 20091204
  Receipt Date: 20091123
  Transmission Date: 20100525
  Serious: Yes (Hospitalization, Other)
  Sender: FDA-Public Use
  Company Number: US-RANBAXY-2008US-18027

PATIENT

DRUGS (21)
  1. IBUPROFEN [Suspect]
     Indication: CANCER PAIN
     Dosage: 400 MG, TID
     Route: 065
  2. IBUPROFEN [Suspect]
     Dosage: 800 MG, TID
  3. LORAZEPAM [Suspect]
     Indication: CANCER PAIN
     Dosage: 0.25 MG, TID
     Route: 065
  4. LIDOCAINE [Suspect]
     Indication: CANCER PAIN
     Dosage: 5 % PATCH
     Route: 061
  5. LIDOCAINE [Suspect]
     Dosage: 15 MG, UNK
  6. LIDOCAINE [Suspect]
     Dosage: 50 MG, TID
  7. LIDOCAINE [Suspect]
     Dosage: 120 MG, TID
  8. HYDROMORPHONE HCL [Suspect]
     Indication: CANCER PAIN
     Dosage: DEMAND DOSE 4.5 MG EVERY 12 MIN WITH 9 MG/H BASAL RATE
     Route: 065
  9. HYDROMORPHONE HCL [Suspect]
     Dosage: DEMAND DOSE OF 13 MG EVERY 10 MINUTES WITH 27 MG/H BASAL RATE
  10. HYDROMORPHONE HCL [Suspect]
     Dosage: DEMAND DOSE OF 10 MG EVERY 15 MINUTES WITH 20 MG/H BASAL RATE
  11. METHADONE [Suspect]
     Indication: CANCER PAIN
     Dosage: 10 MG BID
     Route: 065
  12. OXYCODONE HYDROCHLORIDE [Suspect]
     Indication: PAIN
     Dosage: 140 MG EVERY 12 HOUR
     Route: 065
  13. OXYCODONE HYDROCHLORIDE [Suspect]
     Dosage: 120 MG TID
     Route: 065
  14. MORPHINE [Suspect]
     Indication: PAIN
     Dosage: (PCA) 3 MG EVERY 6 MIN AND 6 MG/HR
  15. MORPHINE [Suspect]
     Dosage: 120 MG EVEY 3 HOUR (IR)
  16. MORPHINE [Suspect]
     Dosage: 200 MG EVEY 3 HOUR (IR)
  17. MORPHINE [Suspect]
     Dosage: (PCA) 4 MG DEMAND DOSE AND 10 MG/H BASAL RATE
  18. MORPHINE [Suspect]
     Dosage: 230 MG TID (SR)
  19. OXYCODONE HCL [Suspect]
     Indication: PAIN
     Dosage: 15 MG EVERY 4 HRS
     Route: 065
  20. OXYCODONE HCL [Suspect]
     Dosage: 50 MG EVERY 8 HRS
     Route: 065
  21. FENTANYL CITRATE [Suspect]
     Indication: PAIN
     Dosage: 200 MCG PATCH

REACTIONS (9)
  - ASTHENIA [None]
  - BACK PAIN [None]
  - DRUG INEFFECTIVE [None]
  - FATIGUE [None]
  - HYPERAESTHESIA [None]
  - NAUSEA [None]
  - SEDATION [None]
  - SOMNOLENCE [None]
  - VOMITING [None]
